FAERS Safety Report 7225563-2 (Version None)
Quarter: 2011Q1

REPORT INFORMATION
  Report Type: 
  Country: None (occurrence: None)
  Receive Date: 20110113
  Receipt Date: 20110104
  Transmission Date: 20110831
  Serious: Yes (Other)
  Sender: FDA-Public Use
  Company Number: US-PURDUE-USA-2010-0048737

PATIENT
  Sex: Female

DRUGS (1)
  1. OXYCONTIN [Suspect]
     Indication: PANCREATITIS CHRONIC
     Dosage: 80 MG, TID
     Dates: start: 20100801

REACTIONS (6)
  - HEPATIC FAILURE [None]
  - DYSPEPSIA [None]
  - ABDOMINAL DISCOMFORT [None]
  - ERUCTATION [None]
  - VOMITING [None]
  - BLOOD GLUCOSE INCREASED [None]
